FAERS Safety Report 25779016 (Version 1)
Quarter: 2025Q3

REPORT INFORMATION
  Report Type: Spontaneous
  Country: US (occurrence: US)
  Receive Date: 20250909
  Receipt Date: 20250909
  Transmission Date: 20251021
  Serious: No
  Sender: AMGEN
  Company Number: US-AMGEN-USASP2025177906

PATIENT

DRUGS (2)
  1. EVENITY [Suspect]
     Active Substance: ROMOSOZUMAB-AQQG
     Indication: Product used for unknown indication
     Route: 065
  2. TERIPARATIDE [Suspect]
     Active Substance: TERIPARATIDE
     Indication: Product used for unknown indication
     Route: 065

REACTIONS (1)
  - Migraine with aura [Recovering/Resolving]

NARRATIVE: CASE EVENT DATE: 20250101
